FAERS Safety Report 11968721 (Version 1)
Quarter: 2016Q1

REPORT INFORMATION
  Report Type: Spontaneous
  Country: US (occurrence: US)
  Receive Date: 20160128
  Receipt Date: 20160128
  Transmission Date: 20160526
  Serious: Yes (Other)
  Sender: FDA-Public Use
  Company Number: US-BEH-2016057965

PATIENT
  Sex: Female
  Weight: 65 kg

DRUGS (39)
  1. HIZENTRA [Suspect]
     Active Substance: HUMAN IMMUNOGLOBULIN G
     Indication: ASTHMA
     Route: 058
     Dates: start: 20101008
  2. KEFLEX [Concomitant]
     Active Substance: CEPHALEXIN
  3. EFFEXOR [Concomitant]
     Active Substance: VENLAFAXINE HYDROCHLORIDE
  4. CLONAZEPAM. [Concomitant]
     Active Substance: CLONAZEPAM
  5. POTASSIUM [Concomitant]
     Active Substance: POTASSIUM
  6. ZOFRAN [Concomitant]
     Active Substance: ONDANSETRON HYDROCHLORIDE
  7. TRAMADOL. [Concomitant]
     Active Substance: TRAMADOL
  8. BUSPIRONE [Concomitant]
     Active Substance: BUSPIRONE HYDROCHLORIDE
  9. MAGNESIUM [Concomitant]
     Active Substance: MAGNESIUM
  10. MORPHINE [Concomitant]
     Active Substance: MORPHINE
  11. ESTER-C [Concomitant]
     Active Substance: CALCIUM\VITAMINS
  12. HIZENTRA [Suspect]
     Active Substance: HUMAN IMMUNOGLOBULIN G
     Indication: DYSPNOEA
     Route: 058
     Dates: start: 20101008
  13. BACTRIM [Concomitant]
     Active Substance: SULFAMETHOXAZOLE\TRIMETHOPRIM
  14. METFORMIN [Concomitant]
     Active Substance: METFORMIN HYDROCHLORIDE
  15. MULTIVITAMINS [Concomitant]
     Active Substance: VITAMINS
  16. XOPENEX [Concomitant]
     Active Substance: LEVALBUTEROL HYDROCHLORIDE
  17. HIZENTRA [Suspect]
     Active Substance: HUMAN IMMUNOGLOBULIN G
     Indication: ACUTE SINUSITIS
     Route: 058
     Dates: start: 20101008
  18. CIPRO [Concomitant]
     Active Substance: CIPROFLOXACIN HYDROCHLORIDE
  19. INDOMETHACIN. [Concomitant]
     Active Substance: INDOMETHACIN
  20. SALINE NASAL SPRAY [Concomitant]
     Active Substance: SODIUM CHLORIDE
  21. DIPHENHYDRAMINE. [Concomitant]
     Active Substance: DIPHENHYDRAMINE
  22. AMOXICILLIN. [Concomitant]
     Active Substance: AMOXICILLIN
  23. OXYCODONE [Concomitant]
     Active Substance: OXYCODONE
  24. DEMEROL [Concomitant]
     Active Substance: MEPERIDINE HYDROCHLORIDE
  25. VALIUM [Concomitant]
     Active Substance: DIAZEPAM
  26. SEROQUEL [Concomitant]
     Active Substance: QUETIAPINE FUMARATE
  27. BUFFERED [Concomitant]
  28. CEFDINIR. [Concomitant]
     Active Substance: CEFDINIR
  29. MUCINEX [Concomitant]
     Active Substance: GUAIFENESIN
  30. PHENERGAN [Concomitant]
     Active Substance: PROMETHAZINE HYDROCHLORIDE
  31. HIZENTRA [Suspect]
     Active Substance: HUMAN IMMUNOGLOBULIN G
     Indication: ACUTE SINUSITIS
     Route: 058
     Dates: start: 20101008
  32. CYCLOBENZAPRINE [Concomitant]
     Active Substance: CYCLOBENZAPRINE
  33. ACYCLOVIR. [Concomitant]
     Active Substance: ACYCLOVIR
  34. TRAZODONE [Concomitant]
     Active Substance: TRAZODONE HYDROCHLORIDE
  35. ZEGERID [Concomitant]
     Active Substance: OMEPRAZOLE\SODIUM BICARBONATE
  36. HIZENTRA [Suspect]
     Active Substance: HUMAN IMMUNOGLOBULIN G
     Indication: WHEEZING
     Route: 058
     Dates: start: 20101008
  37. PREDNISONE. [Concomitant]
     Active Substance: PREDNISONE
  38. CODEINE [Concomitant]
     Active Substance: CODEINE
  39. LEXAPRO [Concomitant]
     Active Substance: ESCITALOPRAM OXALATE

REACTIONS (1)
  - Asthma [Unknown]
